FAERS Safety Report 7441429-7 (Version None)
Quarter: 2011Q2

REPORT INFORMATION
  Report Type: 
  Country: None (occurrence: None)
  Receive Date: 20110428
  Receipt Date: 20110418
  Transmission Date: 20111010
  Serious: Yes (Other)
  Sender: FDA-Public Use
  Company Number: US-ASTRAZENECA-2007UW28090

PATIENT
  Age: 51 Year
  Sex: Male
  Weight: 92.5 kg

DRUGS (2)
  1. SEROQUEL [Suspect]
     Indication: SLEEP DISORDER
     Dosage: 100 MG-200 MG
     Route: 048
     Dates: start: 20030901, end: 20080801
  2. SEROQUEL [Suspect]
     Indication: DEPRESSION
     Dosage: 100 MG-200 MG
     Route: 048
     Dates: start: 20030901, end: 20080801

REACTIONS (2)
  - TYPE 2 DIABETES MELLITUS [None]
  - ARTHROPATHY [None]
